FAERS Safety Report 5176572-9 (Version None)
Quarter: 2006Q4

REPORT INFORMATION
  Report Type: 
  Country: None (occurrence: None)
  Receive Date: 20061215
  Receipt Date: 20061208
  Transmission Date: 20070319
  Serious: Yes (Other)
  Sender: FDA-Public Use
  Company Number: UG-BOEHRINGER INGELHEIM PHARMACEUTICALS, INC.-2006-DE-06563GD

PATIENT
  Sex: Male

DRUGS (3)
  1. NEVIRAPINE [Suspect]
     Indication: HIV INFECTION
     Dates: start: 20010601, end: 20030601
  2. STAVUDINE [Suspect]
     Indication: HIV INFECTION
     Dates: end: 20030601
  3. DIDANOSINE [Suspect]
     Indication: HIV INFECTION
     Dates: start: 20010601, end: 20030601

REACTIONS (4)
  - DIABETES MELLITUS [None]
  - DRUG INEFFECTIVE [None]
  - DRUG RESISTANCE [None]
  - WEIGHT DECREASED [None]
